FAERS Safety Report 4360551-5 (Version None)
Quarter: 2004Q2

REPORT INFORMATION
  Report Type: 
  Country: None (occurrence: None)
  Receive Date: 20040513
  Receipt Date: 20040510
  Transmission Date: 20050107
  Serious: Yes (Death)
  Sender: FDA-Public Use
  Company Number: USA-2004-0013536

PATIENT
  Age: 41 Year
  Sex: Female
  Weight: 76.6 kg

DRUGS (9)
  1. OXYCODONE HCL [Suspect]
  2. HYDROCODONE BITARTRATE [Suspect]
  3. FLUOXETINE [Suspect]
  4. CAFFEINE (CAFFEINE) [Suspect]
  5. ALPRAZOLAM [Suspect]
  6. CITALOPRAM [Suspect]
  7. METOCLOPRAMIDE [Suspect]
  8. NICOTINE [Suspect]
  9. GABAPENTIN [Suspect]

REACTIONS (6)
  - ACCIDENTAL OVERDOSE [None]
  - CARDIOMEGALY [None]
  - CHRONIC OBSTRUCTIVE AIRWAYS DISEASE [None]
  - COMA [None]
  - DRUG TOXICITY [None]
  - FALL [None]
